FAERS Safety Report 4964798-6 (Version None)
Quarter: 2006Q2

REPORT INFORMATION
  Report Type: 
  Country: None (occurrence: None)
  Receive Date: 20060403
  Receipt Date: 20060322
  Transmission Date: 20061013
  Serious: Yes (Hospitalization, Other)
  Sender: FDA-Public Use
  Company Number: DEWYE127310NOV05

PATIENT
  Age: 56 Year
  Sex: Female

DRUGS (4)
  1. RAPAMUNE [Suspect]
     Indication: PROPHYLAXIS AGAINST TRANSPLANT REJECTION
     Dosage: 5 MG ORAL
     Route: 048
     Dates: start: 20050101
  2. CELLCEPT [Suspect]
     Indication: PROPHYLAXIS AGAINST TRANSPLANT REJECTION
     Dosage: 1.5 G ORAL
     Route: 048
     Dates: start: 20050401
  3. CIPRAMIL (CITALORPAM HYDROBROMIDE, , 0) [Suspect]
     Indication: DEPRESSION
     Dosage: 20 MG ORAL
     Route: 048
  4. PANTOZOL (PANTOPRAZOLE, , 0) [Suspect]
     Indication: PROPHYLAXIS AGAINST GASTROINTESTINAL ULCER
     Dosage: 40 MG ORAL
     Route: 048
     Dates: start: 20050401

REACTIONS (1)
  - AGRANULOCYTOSIS [None]
